FAERS Safety Report 5984501-0 (Version None)
Quarter: 2008Q4

REPORT INFORMATION
  Report Type: 
  Country: None (occurrence: None)
  Receive Date: 20081208
  Receipt Date: 20081127
  Transmission Date: 20090506
  Serious: Yes (Other)
  Sender: FDA-Public Use
  Company Number: CA-GENENTECH-271180

PATIENT

DRUGS (1)
  1. BEVACIZUMAB [Suspect]
     Indication: MACULAR OEDEMA
     Dosage: UNK
     Route: 031
     Dates: start: 20080815

REACTIONS (4)
  - EYE INFLAMMATION [None]
  - IRIDOCYCLITIS [None]
  - VISION BLURRED [None]
  - VITRITIS [None]
